FAERS Safety Report 15874763 (Version 1)
Quarter: 2019Q1

REPORT INFORMATION
  Report Type: Other
  Country: US (occurrence: US)
  Receive Date: 20190126
  Receipt Date: 20190126
  Transmission Date: 20190417
  Serious: No
  Sender: FDA-Public Use
  Company Number: US-ACORDA-ACO_153178_2018

PATIENT
  Sex: Female

DRUGS (2)
  1. ROPINIROLE. [Suspect]
     Active Substance: ROPINIROLE
     Indication: MUSCLE SPASMS
     Dosage: 2 MG, QID
     Route: 065
  2. AMPYRA [Suspect]
     Active Substance: DALFAMPRIDINE
     Indication: MULTIPLE SCLEROSIS
     Dosage: UNK, BID
     Route: 048

REACTIONS (4)
  - Muscle spasms [Unknown]
  - Fatigue [Unknown]
  - Therapeutic response unexpected [Unknown]
  - Feeling abnormal [Unknown]
